APPROVED DRUG PRODUCT: AMINOPHYLLINE
Active Ingredient: AMINOPHYLLINE
Strength: 25MG/ML
Dosage Form/Route: INJECTABLE;INJECTION
Application: A087868 | Product #001
Applicant: INTERNATIONAL MEDICATION SYSTEMS LTD
Approved: Nov 10, 1983 | RLD: No | RS: No | Type: DISCN